FAERS Safety Report 18679280 (Version 2)
Quarter: 2021Q2

REPORT INFORMATION
  Report Type: Report from Study
  Country: JP (occurrence: JP)
  Receive Date: 20201229
  Receipt Date: 20210622
  Transmission Date: 20210717
  Serious: Yes (Death, Hospitalization)
  Sender: FDA-Public Use
  Company Number: JP-JNJFOC-A-CH2020-202936

PATIENT
  Age: 68 Year
  Sex: Female
  Weight: 38 kg

DRUGS (53)
  1. OPSUMIT [Suspect]
     Active Substance: MACITENTAN
     Indication: PULMONARY ARTERIAL HYPERTENSION
     Route: 048
     Dates: start: 20171121, end: 20190523
  2. PREDONINE [Concomitant]
     Active Substance: PREDNISOLONE
     Dosage: 10 MG, BID
     Route: 048
     Dates: start: 20171216, end: 20180124
  3. PREDONINE [Concomitant]
     Active Substance: PREDNISOLONE
     Dosage: UNK
     Dates: start: 20190519
  4. PREDNISOLONE. [Concomitant]
     Active Substance: PREDNISOLONE
     Indication: SYSTEMIC SCLERODERMA
     Dosage: 1 MG, QD
     Route: 048
     Dates: start: 20180125
  5. PREDNISOLONE. [Concomitant]
     Active Substance: PREDNISOLONE
     Indication: INTERSTITIAL LUNG DISEASE
  6. NEORAL [Concomitant]
     Active Substance: CYCLOSPORINE
     Indication: SYSTEMIC SCLERODERMA
     Dosage: 150 MG, QD
     Route: 048
     Dates: start: 20171025, end: 20190523
  7. ALFAROL [Concomitant]
     Active Substance: ALFACALCIDOL
     Indication: SYSTEMIC SCLERODERMA
     Dosage: 1 MCG, QD
     Route: 048
     Dates: start: 20171026
  8. DAIPHEN [Concomitant]
     Active Substance: SULFAMETHOXAZOLE\TRIMETHOPRIM
     Indication: INTERSTITIAL LUNG DISEASE
     Dosage: 1 DF, QD
     Route: 048
     Dates: start: 20171026, end: 20190523
  9. BFLUID [Concomitant]
     Active Substance: AMINO ACIDS\DEXTROSE\ELECTROLYTES NOS\VITAMINS
     Indication: FLUID REPLACEMENT
     Dosage: 500 ML, QD
     Route: 041
     Dates: start: 20190516, end: 20190517
  10. ISOTONIC SODIUM CHLORIDE SOLUTION [Concomitant]
     Active Substance: SODIUM CHLORIDE
     Indication: HYPONATRAEMIA
     Dosage: 500 ML, QD
     Route: 041
     Dates: start: 20190517, end: 20190517
  11. PREDONINE [Concomitant]
     Active Substance: PREDNISOLONE
     Dosage: 5 MG
     Route: 048
     Dates: end: 20181225
  12. PREDONINE [Concomitant]
     Active Substance: PREDNISOLONE
     Dosage: 12.5 MG, BID
     Route: 048
     Dates: start: 20181226, end: 20190516
  13. FUROSEMIDE. [Concomitant]
     Active Substance: FUROSEMIDE
     Dosage: 20 MG, QD
     Route: 048
     Dates: start: 20171218, end: 20190517
  14. LOSARTAN POTASSIUM. [Concomitant]
     Active Substance: LOSARTAN POTASSIUM
     Indication: COR PULMONALE
     Dosage: 25 MG, QD
     Route: 048
     Dates: start: 20171125, end: 20190523
  15. FIBROGAMMIN P [Concomitant]
     Active Substance: FACTOR XIII CONCENTRATE (HUMAN)
     Indication: PROPHYLAXIS
     Dosage: 1 DF, QD
     Route: 041
     Dates: start: 20171202, end: 20171206
  16. AMBROXOL HYDROCHLORIDE [Concomitant]
     Active Substance: AMBROXOL HYDROCHLORIDE
     Indication: PROPHYLAXIS
     Dosage: 15 MG, TID
     Route: 048
     Dates: start: 20171025, end: 20171206
  17. ADEMPAS [Concomitant]
     Active Substance: RIOCIGUAT
     Indication: PULMONARY ARTERIAL HYPERTENSION
     Dosage: 0.5 MG, QD
     Route: 048
     Dates: start: 20171026, end: 20171121
  18. KCL [Concomitant]
     Active Substance: POTASSIUM CHLORIDE
     Indication: INTERSTITIAL LUNG DISEASE
  19. PREDONINE [Concomitant]
     Active Substance: PREDNISOLONE
     Dosage: 10 MG, QD
     Route: 048
     Dates: end: 20181225
  20. TAKECAB [Concomitant]
     Active Substance: VONOPRAZAN FUMARATE
     Indication: PROPHYLAXIS
     Dosage: 20 MG, QD
     Route: 048
     Dates: start: 20171025, end: 20190523
  21. MOSAPRIDE CITRATE [Concomitant]
     Active Substance: MOSAPRIDE CITRATE
     Indication: PROPHYLAXIS
     Dosage: 5 MG, TID
     Route: 048
     Dates: start: 20171025, end: 20190523
  22. DAIKENCHUTO [Concomitant]
     Active Substance: HERBALS
     Indication: PROPHYLAXIS
     Dosage: 2.5 G, TID
     Route: 048
     Dates: start: 20171125, end: 20190523
  23. CODEINE PHOSPHATE [Concomitant]
     Active Substance: CODEINE PHOSPHATE
     Indication: INTERSTITIAL LUNG DISEASE
     Dosage: 10 MG, TID
     Route: 048
     Dates: start: 20171203, end: 20171227
  24. ALBUMIN [Concomitant]
     Active Substance: ALBUMIN HUMAN
     Indication: PROPHYLAXIS
     Dosage: 12.5 G, QD
     Route: 041
     Dates: start: 20171204, end: 20171206
  25. BICANATE [Concomitant]
     Active Substance: CALCIUM CHLORIDE\MAGNESIUM CHLORIDE\POTASSIUM CHLORIDE\SODIUM BICARBONATE\SODIUM CHLORIDE\TRISODIUM CITRATE DIHYDRATE
     Indication: SUPPLEMENTATION THERAPY
     Dosage: 500 ML, QD
     Route: 041
     Dates: start: 20190515, end: 20190515
  26. NORADRENALINE [Concomitant]
     Active Substance: NOREPINEPHRINE
     Indication: HYPOTENSION
     Dosage: 1 MG Q5HOURS
     Route: 041
     Dates: start: 20190517, end: 20190524
  27. ISOTONIC SODIUM CHLORIDE SOLUTION [Concomitant]
     Active Substance: SODIUM CHLORIDE
     Dosage: 20 ML, QD
     Route: 041
     Dates: start: 20190522, end: 20190522
  28. ISOTONIC SODIUM CHLORIDE SOLUTION [Concomitant]
     Active Substance: SODIUM CHLORIDE
     Dosage: 20 ML, QD
     Route: 058
     Dates: start: 20190523, end: 20190524
  29. PANTOSIN [Concomitant]
     Active Substance: PANTETHINE
     Indication: PLATELET COUNT DECREASED
     Dosage: 100 ML, QD
     Route: 041
     Dates: start: 20190523, end: 20190524
  30. TAKEPRON [Concomitant]
     Active Substance: LANSOPRAZOLE
     Indication: GASTRIC MUCOSAL LESION
     Dosage: 30 MG, BID
     Route: 041
     Dates: start: 20190524, end: 20190525
  31. RIKKUNSHITO [ATRACTYLODES LANCEA RHIZOME;CITRUS RETICULATA PEEL;GLYCYR [Concomitant]
  32. UPTRAVI [Suspect]
     Active Substance: SELEXIPAG
     Indication: PULMONARY ARTERIAL HYPERTENSION
     Dosage: 0.4 MG, BID
     Route: 048
     Dates: start: 20171212, end: 20190523
  33. PREDONINE [Concomitant]
     Active Substance: PREDNISOLONE
     Indication: SYSTEMIC SCLERODERMA
     Dosage: 20 MG, BID
     Route: 048
     Dates: start: 20171116, end: 20171129
  34. PANTETHINE [Concomitant]
     Active Substance: PANTETHINE
     Indication: GASTROINTESTINAL HYPOMOTILITY
     Dosage: UNK, BID
     Route: 048
     Dates: end: 20190523
  35. MAGNESIUM OXIDE. [Concomitant]
     Active Substance: MAGNESIUM OXIDE
     Dosage: 2 G, QD
     Dates: end: 20180606
  36. SOLDEM 3A [Concomitant]
     Active Substance: CARBOHYDRATES\POTASSIUM CHLORIDE\SODIUM CHLORIDE\SODIUM LACTATE
     Indication: SUPPLEMENTATION THERAPY
     Dosage: 500 ML, QD
     Route: 041
     Dates: start: 20190523, end: 20190524
  37. SOLDEM 3A [Concomitant]
     Active Substance: CARBOHYDRATES\POTASSIUM CHLORIDE\SODIUM CHLORIDE\SODIUM LACTATE
     Indication: INTERSTITIAL LUNG DISEASE
  38. NEOLAMIN 3B [Concomitant]
     Indication: VITAMIN SUPPLEMENTATION
     Dosage: 10 ML, QD
     Route: 041
     Dates: start: 20190523, end: 20190524
  39. KCL [Concomitant]
     Active Substance: POTASSIUM CHLORIDE
     Indication: ELECTROLYTE SUBSTITUTION THERAPY
     Dosage: 20 ML, QD
     Route: 041
     Dates: start: 20190523, end: 20190524
  40. UPTRAVI [Suspect]
     Active Substance: SELEXIPAG
     Dosage: 0.2 MG, BID
     Route: 048
     Dates: start: 20171205, end: 20171211
  41. PREDONINE [Concomitant]
     Active Substance: PREDNISOLONE
     Indication: INTERSTITIAL LUNG DISEASE
     Dosage: 15 MG, BID
     Route: 048
     Dates: start: 20171130, end: 20171208
  42. PREDONINE [Concomitant]
     Active Substance: PREDNISOLONE
     Dosage: 12.5 MG, BID
     Route: 048
     Dates: start: 20171209, end: 20171215
  43. FUROSEMIDE. [Concomitant]
     Active Substance: FUROSEMIDE
     Indication: COR PULMONALE
     Dosage: 10 MG, QD
     Route: 048
     Dates: start: 20171116, end: 20181217
  44. FERROUS CITRATE NA [Concomitant]
     Active Substance: SODIUM FERROUS CITRATE
     Indication: IRON DEFICIENCY ANAEMIA
     Dosage: 50 MG, QD
     Route: 048
     Dates: start: 20171025, end: 20190523
  45. PANTETHINE [Concomitant]
     Active Substance: PANTETHINE
     Indication: ENTERITIS
     Dosage: 1 G, BID
     Route: 048
     Dates: start: 20171114, end: 20190523
  46. PREDONINE [Concomitant]
     Active Substance: PREDNISOLONE
     Dosage: 7.5?10MG/BID
     Route: 048
     Dates: start: 20180125
  47. SPIRONOLACTONE. [Concomitant]
     Active Substance: SPIRONOLACTONE
     Indication: COR PULMONALE
     Dosage: 25 MG, QD
     Route: 048
     Dates: start: 20171218, end: 20190517
  48. NORADRENALINE [Concomitant]
     Active Substance: NOREPINEPHRINE
     Indication: INTERSTITIAL LUNG DISEASE
  49. ACOFIDE [Concomitant]
     Active Substance: ACOTIAMIDE HYDROCHLORIDE
     Indication: GASTROINTESTINAL HYPOMOTILITY
     Dosage: 100 MG, TID
     Route: 048
     Dates: start: 20171025, end: 20190523
  50. CARBOCISTEINE [Concomitant]
     Active Substance: CARBOCYSTEINE
     Indication: INTERSTITIAL LUNG DISEASE
     Dosage: 250 MG, TID
     Route: 048
     Dates: start: 20171025, end: 20171206
  51. MAGNESIUM OXIDE. [Concomitant]
     Active Substance: MAGNESIUM OXIDE
     Indication: CONSTIPATION
     Dosage: 2 G, QD
     Route: 048
     Dates: start: 20171203, end: 20171227
  52. MARZULENE?S [Concomitant]
     Active Substance: GLUTAMINE\SODIUM GUALENATE
     Indication: PROPHYLAXIS
     Dosage: 1.5 G, TID
     Route: 048
     Dates: start: 20171025, end: 20171206
  53. VEEN D [Concomitant]
     Active Substance: CALCIUM CHLORIDE\DEXTROSE\POTASSIUM CHLORIDE\SODIUM ACETATE\SODIUM CHLORIDE
     Indication: SUPPLEMENTATION THERAPY
     Dosage: 500 ML, QD
     Route: 041
     Dates: start: 20190516, end: 20190516

REACTIONS (4)
  - Dyspnoea [Fatal]
  - General physical health deterioration [Fatal]
  - Interstitial lung disease [Fatal]
  - Brain natriuretic peptide increased [Fatal]

NARRATIVE: CASE EVENT DATE: 20190514
